FAERS Safety Report 5647420-5 (Version None)
Quarter: 2008Q1

REPORT INFORMATION
  Report Type: 
  Country: None (occurrence: None)
  Receive Date: 20080303
  Receipt Date: 20080225
  Transmission Date: 20080703
  Serious: Yes (Hospitalization)
  Sender: FDA-Public Use
  Company Number: FR-ASTRAZENECA-2008CG00310

PATIENT
  Age: 81 Year
  Sex: Female

DRUGS (27)
  1. ATACAND [Suspect]
     Route: 048
     Dates: end: 20070214
  2. ATACAND [Suspect]
     Route: 048
     Dates: start: 20070215, end: 20070217
  3. ATACAND [Suspect]
     Route: 048
     Dates: start: 20070218, end: 20070313
  4. PREVISCAN [Suspect]
     Route: 048
     Dates: start: 20070208, end: 20070313
  5. PROPOXYPHENE HCL AND ACETAMINOPHEN [Suspect]
     Route: 048
     Dates: end: 20070213
  6. PROPOXYPHENE HCL AND ACETAMINOPHEN [Suspect]
     Route: 048
     Dates: start: 20070307, end: 20070309
  7. AUGMENTIN '250' [Suspect]
     Route: 048
     Dates: start: 20070225, end: 20070302
  8. MYCOSTATIN [Suspect]
     Route: 048
     Dates: start: 20070306, end: 20070321
  9. PULMICORT [Concomitant]
     Route: 055
     Dates: start: 20070212, end: 20070223
  10. NEXIUM [Concomitant]
     Route: 065
     Dates: start: 20070208
  11. SOLUPRED [Concomitant]
     Route: 048
     Dates: start: 20070225, end: 20070227
  12. CELESTONE [Concomitant]
     Dates: start: 20070209, end: 20070211
  13. CELESTONE [Concomitant]
     Dates: start: 20070215, end: 20070223
  14. CORDARONE [Concomitant]
     Dates: start: 20070208, end: 20070214
  15. LASILIX [Concomitant]
     Dates: start: 20070208, end: 20070212
  16. LASILIX [Concomitant]
     Dates: start: 20070213
  17. ALDACTONE [Concomitant]
     Dates: end: 20070215
  18. VASTEN [Concomitant]
     Dates: start: 20070208, end: 20070212
  19. HEMIGOXINE [Concomitant]
     Dates: start: 20070208, end: 20070226
  20. CARDENSIEL [Concomitant]
     Dates: start: 20070208, end: 20070212
  21. SILOMAT [Concomitant]
     Dates: start: 20070215, end: 20070223
  22. DAFALGAN [Concomitant]
     Dates: start: 20070214, end: 20070222
  23. TRINIPATCH [Concomitant]
     Dates: start: 20070214, end: 20070225
  24. TOPLEXIL [Concomitant]
     Dates: start: 20070219, end: 20070319
  25. VEINAMITOL [Concomitant]
     Dates: start: 20070223, end: 20070302
  26. INSPRA [Concomitant]
     Dates: start: 20070226, end: 20070301
  27. PEVARYL [Concomitant]
     Dates: start: 20070306

REACTIONS (2)
  - HYPERSENSITIVITY [None]
  - PRURITUS [None]
